FAERS Safety Report 9477092 (Version 1)
Quarter: 2013Q3

REPORT INFORMATION
  Report Type: Spontaneous
  Country: ES (occurrence: GB)
  Receive Date: 20130826
  Receipt Date: 20130826
  Transmission Date: 20140515
  Serious: Yes (Other)
  Sender: FDA-Public Use
  Company Number: GB-FRI-1000048124

PATIENT
  Age: 78 Year
  Sex: Male
  Weight: 70 kg

DRUGS (9)
  1. ACLIDINIUM [Suspect]
     Indication: CHRONIC OBSTRUCTIVE PULMONARY DISEASE
     Dosage: 2 DF
     Route: 055
     Dates: start: 20130705, end: 20130725
  2. ANGEZE [Concomitant]
  3. ANGITIL XL [Concomitant]
  4. VITAMIN D [Concomitant]
  5. FLOMAX MR [Concomitant]
  6. GLYCERIL TRINITRATE [Concomitant]
  7. NICORANDIL [Concomitant]
  8. SERETIDE [Concomitant]
  9. MONOMAX SR [Concomitant]

REACTIONS (2)
  - Angina pectoris [Recovered/Resolved]
  - Chest pain [Recovered/Resolved]
